FAERS Safety Report 9115164 (Version 1)
Quarter: 2013Q1

REPORT INFORMATION
  Report Type: Spontaneous
  Country: US (occurrence: None)
  Receive Date: 20130220
  Receipt Date: 20130220
  Transmission Date: 20140127
  Serious: Yes (Death, Hospitalization)
  Sender: FDA-Public Use
  Company Number: None

PATIENT
  Sex: Female
  Weight: 55 kg

DRUGS (18)
  1. BEVACIZUMAB (RHUMAB VEGF) (704865) [Suspect]
  2. CARBOPLATIN [Suspect]
  3. CETUXIMAB (ERBITUX) (714692) [Suspect]
  4. PACLITAXEL (TAXOL) [Suspect]
  5. CALCIUM + VITAMIN D [Concomitant]
  6. CRANBERRY SUPPLEMENT [Concomitant]
  7. NORVASC [Concomitant]
  8. OMEGA 3 [Concomitant]
  9. PATANOL [Concomitant]
  10. VITAMIN D [Concomitant]
  11. ATIVAN [Concomitant]
  12. COMPAZINE [Concomitant]
  13. CYCLOBENZAPRINE [Concomitant]
  14. DECADRON [Concomitant]
  15. DOXYCYCLINE [Concomitant]
  16. EFFEXOR [Concomitant]
  17. LEVOTHYROXINE [Concomitant]
  18. SIMVASTATIN [Concomitant]

REACTIONS (1)
  - Dyspnoea [None]
